FAERS Safety Report 18686233 (Version 3)
Quarter: 2021Q4

REPORT INFORMATION
  Report Type: Spontaneous
  Country: FR (occurrence: FR)
  Receive Date: 20201231
  Receipt Date: 20211122
  Transmission Date: 20220303
  Serious: Yes (Hospitalization, Other)
  Sender: FDA-Public Use
  Company Number: FR-AUROBINDO-AUR-APL-2020-063774

PATIENT
  Age: 90 Year
  Sex: Male

DRUGS (3)
  1. DICLOFENAC [Suspect]
     Active Substance: DICLOFENAC
     Indication: Osteoarthritis
     Dosage: UNK
     Route: 065
  2. PREDNISONE [Suspect]
     Active Substance: PREDNISONE
     Indication: Osteoarthritis
     Dosage: UNK
     Route: 065
  3. TRAMADOL [Suspect]
     Active Substance: TRAMADOL
     Indication: Osteoarthritis
     Dosage: UNK
     Route: 065

REACTIONS (8)
  - Atrial fibrillation [Unknown]
  - Pneumonia aspiration [Unknown]
  - Postictal paralysis [Unknown]
  - Motor dysfunction [Unknown]
  - Status epilepticus [Unknown]
  - Epilepsy [Unknown]
  - Hemiplegia [Unknown]
  - Tongue biting [Unknown]
